FAERS Safety Report 5060654-6 (Version None)
Quarter: 2006Q3

REPORT INFORMATION
  Report Type: 
  Country: None (occurrence: None)
  Receive Date: 20060725
  Receipt Date: 20060718
  Transmission Date: 20061208
  Serious: Yes (Life-Threatening, Hospitalization)
  Sender: FDA-Public Use
  Company Number: PHEH2006US09248

PATIENT
  Age: 61 Year
  Sex: Female
  Weight: 102.04 kg

DRUGS (4)
  1. ZELNORM [Suspect]
     Indication: IMPAIRED GASTRIC EMPTYING
     Dosage: 6 MG, BID
     Route: 048
     Dates: start: 20060501, end: 20060715
  2. ADVAIR DISKUS 100/50 [Concomitant]
  3. LEVOXYL [Concomitant]
  4. LISINOPRIL [Concomitant]

REACTIONS (9)
  - CATHETERISATION CARDIAC ABNORMAL [None]
  - DIAPHRAGM MUSCLE WEAKNESS [None]
  - DYSPNOEA [None]
  - HYPOVENTILATION [None]
  - HYPOXIA [None]
  - PCO2 INCREASED [None]
  - PEAK EXPIRATORY FLOW RATE DECREASED [None]
  - PO2 DECREASED [None]
  - TOTAL LUNG CAPACITY DECREASED [None]
